FAERS Safety Report 6410515-2 (Version None)
Quarter: 2009Q4

REPORT INFORMATION
  Report Type: 
  Country: None (occurrence: None)
  Receive Date: 20091022
  Receipt Date: 20091016
  Transmission Date: 20100525
  Serious: Yes (Other)
  Sender: FDA-Public Use
  Company Number: US-AVENTIS-200919303US

PATIENT
  Sex: Female

DRUGS (1)
  1. LANTUS [Suspect]
     Dosage: DOSE: 18-25
     Route: 058
     Dates: start: 20090801

REACTIONS (1)
  - RETINAL HAEMORRHAGE [None]
